FAERS Safety Report 26069738 (Version 1)
Quarter: 2025Q4

REPORT INFORMATION
  Report Type: Spontaneous
  Country: US (occurrence: US)
  Receive Date: 20251120
  Receipt Date: 20251120
  Transmission Date: 20260117
  Serious: No
  Sender: CATALYST PHARMA
  Company Number: US-CATALYST PHARMACEUTICALS-US-CATA-25-01235

PATIENT
  Age: 10 Year
  Sex: Male
  Weight: 34.921 kg

DRUGS (6)
  1. AGAMREE [Suspect]
     Active Substance: VAMOROLONE
     Indication: Duchenne muscular dystrophy
     Dosage: 4 ML ONCE A DAY
     Route: 048
     Dates: start: 20240503
  2. AGAMREE [Suspect]
     Active Substance: VAMOROLONE
     Dosage: 4.5 ML ONCE A DAY
     Route: 048
     Dates: start: 20250114, end: 2025
  3. AGAMREE [Suspect]
     Active Substance: VAMOROLONE
     Dosage: 5 ML ONCE A DAY
     Route: 048
     Dates: start: 20250719
  4. VITAMIN D [Concomitant]
     Active Substance: VITAMIN D NOS
     Indication: Bone disorder
     Dosage: 1000 UNITS ONCE A DAY
     Route: 065
  5. VITAMIN D [Concomitant]
     Active Substance: VITAMIN D NOS
     Indication: Prophylaxis
  6. LISINOPRIL [Concomitant]
     Active Substance: LISINOPRIL
     Indication: Cardiovascular event prophylaxis
     Dosage: 2.5 MG ONCE A DAY
     Route: 065

REACTIONS (1)
  - Dry mouth [Not Recovered/Not Resolved]

NARRATIVE: CASE EVENT DATE: 20250701
